FAERS Safety Report 18985922 (Version 1)
Quarter: 2021Q1

REPORT INFORMATION
  Report Type: Spontaneous
  Country: JP (occurrence: JP)
  Receive Date: 20210309
  Receipt Date: 20210309
  Transmission Date: 20210420
  Serious: Yes (Other)
  Sender: FDA-Public Use
  Company Number: JP-ACCORD-218673

PATIENT
  Age: 40 Year
  Sex: Female

DRUGS (3)
  1. CARBOPLATIN. [Suspect]
     Active Substance: CARBOPLATIN
     Indication: METASTASES TO SKIN
     Dosage: AUC 5, DAY 1
     Dates: start: 201411
  2. CARBOPLATIN. [Suspect]
     Active Substance: CARBOPLATIN
     Indication: BREAST CANCER RECURRENT
     Dosage: AUC 5, DAY 1
     Dates: start: 201411
  3. GEMCITABINE/GEMCITABINE HYDROCHLORIDE [Suspect]
     Active Substance: GEMCITABINE\GEMCITABINE HYDROCHLORIDE
     Indication: METASTASES TO SKIN
     Dosage: DAY 1,8
     Dates: start: 201411

REACTIONS (3)
  - Nausea [Unknown]
  - Malaise [Unknown]
  - Haematotoxicity [Unknown]
